FAERS Safety Report 7265415-5 (Version None)
Quarter: 2011Q1

REPORT INFORMATION
  Report Type: 
  Country: None (occurrence: None)
  Receive Date: 20110131
  Receipt Date: 20110117
  Transmission Date: 20110831
  Serious: Yes (Other)
  Sender: FDA-Public Use
  Company Number: US-JNJFOC-20110101680

PATIENT
  Age: 44 Year
  Sex: Male

DRUGS (1)
  1. STELARA [Suspect]
     Indication: PSORIASIS
     Dosage: PATIENT HAS HAD 4 DOSES, WITH LAST DOSE RECEIVED ON 22-DEC-2010.
     Route: 058

REACTIONS (3)
  - VISION BLURRED [None]
  - DISORIENTATION [None]
  - HEADACHE [None]
